FAERS Safety Report 20749005 (Version 5)
Quarter: 2025Q3

REPORT INFORMATION
  Report Type: Report from Study
  Country: EU (occurrence: EU)
  Receive Date: 20220426
  Receipt Date: 20250818
  Transmission Date: 20251021
  Serious: Yes (Other)
  Sender: CELLTRION
  Company Number: EU-CELLTRION INC.-2022IT004949

PATIENT

DRUGS (10)
  1. RITUXIMAB [Suspect]
     Active Substance: RITUXIMAB
     Indication: Post transplant lymphoproliferative disorder
     Route: 042
  2. RITUXIMAB [Suspect]
     Active Substance: RITUXIMAB
     Indication: Prophylaxis against graft versus host disease
  3. RITUXIMAB [Suspect]
     Active Substance: RITUXIMAB
     Indication: Prophylaxis against transplant rejection
  4. FLUDARABINE [Suspect]
     Active Substance: FLUDARABINE PHOSPHATE
     Indication: Prophylaxis against graft versus host disease
     Route: 065
  5. TREOSULFAN [Suspect]
     Active Substance: TREOSULFAN
     Indication: Prophylaxis against graft versus host disease
     Route: 065
  6. THIOTEPA [Suspect]
     Active Substance: THIOTEPA
     Indication: Prophylaxis against graft versus host disease
     Route: 065
  7. ATG-FRESENIUS [Suspect]
     Active Substance: LAPINE T-LYMPHOCYTE IMMUNE GLOBULIN
     Indication: Prophylaxis against graft versus host disease
     Route: 065
  8. ATG-FRESENIUS [Suspect]
     Active Substance: LAPINE T-LYMPHOCYTE IMMUNE GLOBULIN
     Indication: Prophylaxis against transplant rejection
     Route: 065
  9. ATG-FRESENIUS [Suspect]
     Active Substance: LAPINE T-LYMPHOCYTE IMMUNE GLOBULIN
     Indication: Allogenic stem cell transplantation
  10. AMPHOTERICIN B [Concomitant]
     Active Substance: AMPHOTERICIN B
     Indication: Antifungal prophylaxis
     Dosage: 5 MG PER KG, ONCE WEEKLY) UNTIL THE FIRST 100 DAYS AFTER HSCT

REACTIONS (13)
  - Cystitis haemorrhagic [Unknown]
  - Encephalitis viral [Recovered/Resolved]
  - Progressive multifocal leukoencephalopathy [Unknown]
  - Cytomegalovirus infection [Recovered/Resolved]
  - JC virus infection [Recovered/Resolved]
  - Viral haemorrhagic cystitis [Unknown]
  - Encephalitis [Recovered/Resolved]
  - Staphylococcal bacteraemia [Recovered/Resolved]
  - Lymphopenia [Unknown]
  - Human herpesvirus 6 infection [Recovered/Resolved]
  - BK virus infection [Recovered/Resolved]
  - Staphylococcal infection [Unknown]
  - Intentional product use issue [Unknown]
